FAERS Safety Report 7801072-4 (Version None)
Quarter: 2011Q4

REPORT INFORMATION
  Report Type: 
  Country: None (occurrence: None)
  Receive Date: 20111007
  Receipt Date: 20110928
  Transmission Date: 20120403
  Serious: No
  Sender: FDA-Public Use
  Company Number: US-BIOGENIDEC-2011BI036801

PATIENT
  Age: 52 Year
  Sex: Male

DRUGS (2)
  1. TYSABRI [Suspect]
     Route: 042
  2. TYSABRI [Suspect]
     Indication: MULTIPLE SCLEROSIS
     Route: 042
     Dates: start: 20080107, end: 20110706

REACTIONS (9)
  - MUSCLE SPASMS [None]
  - BALANCE DISORDER [None]
  - PAIN [None]
  - GAIT DISTURBANCE [None]
  - MEMORY IMPAIRMENT [None]
  - GENERAL SYMPTOM [None]
  - DIZZINESS POSTURAL [None]
  - PAIN IN EXTREMITY [None]
  - MUSCULOSKELETAL STIFFNESS [None]
